FAERS Safety Report 16178745 (Version 3)
Quarter: 2019Q2

REPORT INFORMATION
  Report Type: Report from Study
  Country: BR (occurrence: BR)
  Receive Date: 20190410
  Receipt Date: 20190529
  Transmission Date: 20190711
  Serious: Yes (Other)
  Sender: FDA-Public Use
  Company Number: BR-EMD SERONO-9083085

PATIENT
  Age: 52 Year
  Sex: Female

DRUGS (4)
  1. REBIF [Suspect]
     Active Substance: INTERFERON BETA-1A
     Route: 058
     Dates: start: 20130417
  2. REBIF [Suspect]
     Active Substance: INTERFERON BETA-1A
     Indication: MULTIPLE SCLEROSIS
     Dates: start: 2012
  3. REBIF [Suspect]
     Active Substance: INTERFERON BETA-1A
     Dates: start: 201903
  4. REBIF [Suspect]
     Active Substance: INTERFERON BETA-1A
     Route: 058
     Dates: start: 2019

REACTIONS (14)
  - Muscular weakness [Recovering/Resolving]
  - Off label use [Recovered/Resolved]
  - Dizziness [Recovered/Resolved]
  - Pain [Unknown]
  - Insomnia [Unknown]
  - Anxiety [Unknown]
  - Product availability issue [Recovered/Resolved]
  - Immunodeficiency [Unknown]
  - Tremor [Recovering/Resolving]
  - Spinal pain [Unknown]
  - Viral infection [Not Recovered/Not Resolved]
  - Paraesthesia [Recovering/Resolving]
  - Vision blurred [Recovering/Resolving]
  - Headache [Recovering/Resolving]

NARRATIVE: CASE EVENT DATE: 201903
